FAERS Safety Report 18955418 (Version 1)
Quarter: 2021Q1

REPORT INFORMATION
  Report Type: Spontaneous
  Country: US (occurrence: US)
  Receive Date: 20210301
  Receipt Date: 20210301
  Transmission Date: 20210420
  Serious: Yes (Hospitalization, Other)
  Sender: FDA-Public Use
  Company Number: US-BAYER-2021-089229

PATIENT
  Age: 80 Year
  Sex: Male

DRUGS (5)
  1. GLIMEPIRIDE. [Interacting]
     Active Substance: GLIMEPIRIDE
     Dosage: UNK, QD
  2. CIPROFLOXACIN. [Suspect]
     Active Substance: CIPROFLOXACIN
     Indication: URINARY TRACT INFECTION
  3. CIPROFLOXACIN. [Interacting]
     Active Substance: CIPROFLOXACIN
     Indication: ASYMPTOMATIC BACTERIURIA
  4. CIPROFLOXACIN. [Interacting]
     Active Substance: CIPROFLOXACIN
     Indication: PSEUDOMONAL BACTERAEMIA
  5. CEFEPIME [Concomitant]
     Active Substance: CEFEPIME HYDROCHLORIDE

REACTIONS (2)
  - Labelled drug-drug interaction medication error [None]
  - Hypoglycaemia [Recovered/Resolved]
